FAERS Safety Report 4497622-9 (Version None)
Quarter: 2004Q4

REPORT INFORMATION
  Report Type: 
  Country: None (occurrence: None)
  Receive Date: 20041105
  Receipt Date: 20041025
  Transmission Date: 20050328
  Serious: Yes (Other)
  Sender: FDA-Public Use
  Company Number: US-JNJFOC-20041000688

PATIENT
  Sex: Male

DRUGS (8)
  1. DURAGESIC [Suspect]
     Route: 062
     Dates: start: 20040905
  2. BEXTRA [Concomitant]
  3. EFFEXOR [Concomitant]
  4. ANDROGEL [Concomitant]
  5. TOPROL-XL [Concomitant]
  6. ZYRTEC [Concomitant]
  7. LORAZEPAM [Concomitant]
  8. NEURONTIN [Concomitant]

REACTIONS (6)
  - BLOOD GLUCOSE DECREASED [None]
  - DEPRESSED LEVEL OF CONSCIOUSNESS [None]
  - GENERAL PHYSICAL CONDITION ABNORMAL [None]
  - OVERDOSE [None]
  - PHARMACEUTICAL PRODUCT COMPLAINT [None]
  - SEDATION [None]
